FAERS Safety Report 5163132-9 (Version None)
Quarter: 2006Q4

REPORT INFORMATION
  Report Type: 
  Country: None (occurrence: None)
  Receive Date: 20061204
  Receipt Date: 20061124
  Transmission Date: 20070319
  Serious: Yes (Other)
  Sender: FDA-Public Use
  Company Number: BR-JNJFOC-20060901634

PATIENT
  Age: 13 Year
  Sex: Male
  Weight: 50 kg

DRUGS (3)
  1. TYLENOL (CAPLET) [Suspect]
     Indication: COUGH
     Route: 048
  2. TYLENOL (CAPLET) [Suspect]
     Indication: INFLUENZA
     Route: 048
  3. CORTICOID [Concomitant]
     Indication: DRUG USE FOR UNKNOWN INDICATION
     Dosage: UNKNOWN DOSE, TWICE A DAY

REACTIONS (2)
  - EYE OEDEMA [None]
  - PARAESTHESIA ORAL [None]
